FAERS Safety Report 4731903-6 (Version None)
Quarter: 2005Q3

REPORT INFORMATION
  Report Type: 
  Country: None (occurrence: None)
  Receive Date: 20050802
  Receipt Date: 20050722
  Transmission Date: 20060218
  Serious: Yes (Other)
  Sender: FDA-Public Use
  Company Number: US-JNJFOC-20050705095

PATIENT
  Sex: Female
  Weight: 76.2 kg

DRUGS (9)
  1. DURAGESIC-100 [Suspect]
     Route: 062
     Dates: start: 20040701
  2. XANAX [Concomitant]
     Indication: DEPRESSION
  3. XANAX [Concomitant]
     Indication: ANXIETY
  4. FLEXERIL [Concomitant]
     Indication: BACK PAIN
  5. NEURONTIN [Concomitant]
  6. LEVOXYL [Concomitant]
     Indication: HYPOTHYROIDISM
  7. VICODIN [Concomitant]
  8. VICODIN [Concomitant]
     Indication: PAIN
  9. COREG [Concomitant]
     Indication: HYPERTENSION
     Route: 048

REACTIONS (2)
  - DEPRESSION [None]
  - SUICIDAL IDEATION [None]
